FAERS Safety Report 23703702 (Version 2)
Quarter: 2024Q2

REPORT INFORMATION
  Report Type: Other
  Country: US (occurrence: US)
  Receive Date: 20240403
  Receipt Date: 20240405
  Transmission Date: 20240716
  Serious: Yes (unspecified)
  Sender: FDA-Public Use
  Company Number: US-RC Outsourcing, LLC-2155191

PATIENT
  Age: 58 Year
  Sex: Female

DRUGS (1)
  1. BEVACIZUMAB [Suspect]
     Active Substance: BEVACIZUMAB
     Route: 031

REACTIONS (1)
  - Endophthalmitis [Not Recovered/Not Resolved]
